FAERS Safety Report 10192681 (Version 1)
Quarter: 2014Q2

REPORT INFORMATION
  Report Type: Report from Study
  Country: DE (occurrence: DE)
  Receive Date: 20140523
  Receipt Date: 20140523
  Transmission Date: 20141212
  Serious: Yes (Hospitalization)
  Sender: FDA-Public Use
  Company Number: DE-ABBVIE-14P-062-1238471-00

PATIENT
  Age: 40 Year
  Sex: Female
  Weight: 45 kg

DRUGS (4)
  1. HUMIRA [Suspect]
     Indication: CROHN^S DISEASE
     Dosage: INITIAL DOSE
     Route: 058
     Dates: start: 20120827, end: 20120827
  2. HUMIRA [Suspect]
     Route: 058
     Dates: start: 201208
  3. AZATHIOPRINE [Suspect]
     Indication: PRODUCT USED FOR UNKNOWN INDICATION
  4. PREDNISOLON [Concomitant]
     Indication: PRODUCT USED FOR UNKNOWN INDICATION

REACTIONS (1)
  - Lung infiltration [Recovered/Resolved]
